FAERS Safety Report 10379893 (Version 2)
Quarter: 2014Q4

REPORT INFORMATION
  Report Type: Report from Study
  Country: JP (occurrence: JP)
  Receive Date: 20140812
  Receipt Date: 20141124
  Transmission Date: 20150528
  Serious: Yes (Other)
  Sender: FDA-Public Use
  Company Number: JP-009507513-1408JPN006038

PATIENT
  Age: 14 Day
  Sex: Female
  Weight: 2.69 kg

DRUGS (5)
  1. RETROVIR [Suspect]
     Active Substance: ZIDOVUDINE
     Dosage: 1.5 MG, QID
     Route: 048
     Dates: start: 20130524, end: 20130614
  2. MUCOSTA [Concomitant]
     Active Substance: REBAMIPIDE
     Indication: PROPHYLAXIS
     Dosage: 100 MG, TID
     Route: 064
     Dates: start: 20120928, end: 20130524
  3. KALETRA [Concomitant]
     Active Substance: LOPINAVIR\RITONAVIR
     Indication: HIV INFECTION
     Dosage: 4(DOSAGE FORM) DAILY, BID
     Route: 064
     Dates: start: 20120928, end: 20130524
  4. ISENTRESS [Suspect]
     Active Substance: RALTEGRAVIR POTASSIUM
     Indication: HIV INFECTION
     Dosage: 800 MG DAILY,DIVIDED DOSE FREQUENCY UNKNOWN
     Route: 064
     Dates: start: 20130115, end: 20130524
  5. PREDONINE [Concomitant]
     Active Substance: PREDNISOLONE\PREDNISOLONE ACETATE\PREDNISOLONE SODIUM SUCCINATE
     Indication: RHEUMATOID ARTHRITIS
     Dosage: 5 MG, BID
     Route: 064
     Dates: start: 20130111, end: 20130524

REACTIONS (2)
  - Foetal exposure during pregnancy [Recovered/Resolved]
  - Iron deficiency anaemia [Recovered/Resolved]

NARRATIVE: CASE EVENT DATE: 20130607
